FAERS Safety Report 14227995 (Version 2)
Quarter: 2018Q1

REPORT INFORMATION
  Report Type: Spontaneous
  Country: DE (occurrence: DE)
  Receive Date: 20171127
  Receipt Date: 20180306
  Transmission Date: 20180508
  Serious: Yes (Hospitalization, Other)
  Sender: FDA-Public Use
  Company Number: DE-PFIZER INC-2017502589

PATIENT
  Sex: Male

DRUGS (2)
  1. LYRICA [Suspect]
     Active Substance: PREGABALIN
     Indication: DEPRESSION
     Dosage: 75 MG, 2X/DAY, IN THE MORNING AND IN THE EVENING
     Route: 048
     Dates: start: 201507, end: 201508
  2. DUODART [Concomitant]
     Active Substance: DUTASTERIDE\TAMSULOSIN
     Indication: PROSTATIC DISORDER
     Dosage: UNK
     Dates: start: 201507

REACTIONS (4)
  - Fall [Recovered/Resolved]
  - Head injury [Unknown]
  - Loss of consciousness [Recovered/Resolved]
  - Product use in unapproved indication [Unknown]

NARRATIVE: CASE EVENT DATE: 20150808
